FAERS Safety Report 15272680 (Version 4)
Quarter: 2019Q1

REPORT INFORMATION
  Report Type: Spontaneous
  Country: DE (occurrence: DE)
  Receive Date: 20180813
  Receipt Date: 20190118
  Transmission Date: 20190417
  Serious: Yes (Hospitalization, Other)
  Sender: FDA-Public Use
  Company Number: PHHY2018DE069333

PATIENT
  Age: 78 Year
  Sex: Female

DRUGS (3)
  1. METEX (METHOTREXATE SODIUM) [Suspect]
     Active Substance: METHOTREXATE SODIUM
     Indication: CREST SYNDROME
     Dosage: 1 DF, QW
     Route: 058
  2. ESTRADIOL. [Suspect]
     Active Substance: ESTRADIOL
     Indication: MENOPAUSAL DISORDER
     Dosage: 1 DF, QD (1 PUFF)
     Route: 062
     Dates: start: 201805, end: 201806
  3. ESTRADIOL. [Suspect]
     Active Substance: ESTRADIOL
     Indication: MENOPAUSAL DISORDER
     Dosage: 1 DF, QD (1 PUFF ONCE DAILY)
     Route: 062
     Dates: start: 201805, end: 201806

REACTIONS (2)
  - Impaired healing [Unknown]
  - Suture rupture [Recovered/Resolved]

NARRATIVE: CASE EVENT DATE: 201804
